FAERS Safety Report 10025285 (Version 1)
Quarter: 2014Q1

REPORT INFORMATION
  Report Type: Spontaneous
  Country: US (occurrence: US)
  Receive Date: 20140320
  Receipt Date: 20140320
  Transmission Date: 20141002
  Serious: Yes (Other)
  Sender: FDA-Public Use
  Company Number: US-GLAXOSMITHKLINE-A1064884A

PATIENT
  Age: 57 Year
  Sex: Female

DRUGS (10)
  1. FLOVENT [Suspect]
     Indication: ASTHMA
     Dosage: 1PUFF TWICE PER DAY
     Route: 055
     Dates: start: 2004
  2. VENTOLIN HFA [Suspect]
     Indication: PRODUCT USED FOR UNKNOWN INDICATION
     Route: 065
     Dates: start: 2004
  3. PROTONIX [Concomitant]
  4. TESSALON [Concomitant]
  5. VITAMIN D [Concomitant]
  6. VITAMIN B12 [Concomitant]
  7. ZANTAC OTC [Concomitant]
  8. VALIUM [Concomitant]
  9. BUPROPION [Concomitant]
  10. PRILOSEC [Concomitant]

REACTIONS (7)
  - Breast cancer [Unknown]
  - Mastectomy [Unknown]
  - Wheezing [Recovering/Resolving]
  - Cough [Recovering/Resolving]
  - Oropharyngeal spasm [Recovering/Resolving]
  - Adverse event [Unknown]
  - Breast calcifications [Unknown]
